FAERS Safety Report 9078794 (Version 1)
Quarter: 2013Q1

REPORT INFORMATION
  Report Type: Spontaneous
  Country: US (occurrence: US)
  Receive Date: 20130215
  Receipt Date: 20130215
  Transmission Date: 20140127
  Serious: No
  Sender: FDA-Public Use
  Company Number: US-009507513-1302USA007188

PATIENT
  Age: 3 Year
  Sex: Male

DRUGS (1)
  1. COPPERTONE KIDS SUNSCREEN STICK SPF-55 [Suspect]
     Indication: PRODUCT USED FOR UNKNOWN INDICATION
     Dosage: UNK, UNKNOWN
     Route: 061
     Dates: start: 20120715

REACTIONS (3)
  - Sunburn [Unknown]
  - Erythema [Unknown]
  - Drug ineffective [Unknown]
